FAERS Safety Report 6370490-6 (Version None)
Quarter: 2009Q3

REPORT INFORMATION
  Report Type: 
  Country: None (occurrence: None)
  Receive Date: 20090918
  Receipt Date: 20090909
  Transmission Date: 20100115
  Serious: Yes (Other)
  Sender: FDA-Public Use
  Company Number: 8044642

PATIENT
  Age: 33 Year
  Sex: Female

DRUGS (3)
  1. KEPPRA [Suspect]
     Indication: EPILEPSY
     Dosage: 1250 MG
  2. PRENATAL VITAMINS /01549301/ [Concomitant]
  3. FOLIC ACID [Concomitant]

REACTIONS (4)
  - DRUG EXPOSURE DURING PREGNANCY [None]
  - PREMATURE LABOUR [None]
  - REFUSAL OF TREATMENT BY PATIENT [None]
  - ULTRASOUND ANTENATAL SCREEN ABNORMAL [None]
